FAERS Safety Report 21161053 (Version 1)
Quarter: 2022Q3

REPORT INFORMATION
  Report Type: Spontaneous
  Country: SA (occurrence: SA)
  Receive Date: 20220802
  Receipt Date: 20220802
  Transmission Date: 20221027
  Serious: Yes (Other)
  Sender: FDA-Public Use
  Company Number: SA-JNJFOC-20220749016

PATIENT
  Age: 42 Year
  Sex: Female

DRUGS (2)
  1. ESKETAMINE [Suspect]
     Active Substance: ESKETAMINE
     Indication: Product used for unknown indication
     Dates: start: 20220723
  2. AMLODIPINE [Concomitant]
     Active Substance: AMLODIPINE BESYLATE
     Route: 065

REACTIONS (5)
  - Blood pressure systolic increased [Recovered/Resolved]
  - Eye disorder [Unknown]
  - Sedation [Unknown]
  - Dizziness [Unknown]
  - Treatment noncompliance [Unknown]

NARRATIVE: CASE EVENT DATE: 20220723
